FAERS Safety Report 4663811-3 (Version None)
Quarter: 2005Q2

REPORT INFORMATION
  Report Type: 
  Country: None (occurrence: None)
  Receive Date: 20050516
  Receipt Date: 20050502
  Transmission Date: 20051028
  Serious: Yes (Death, Hospitalization)
  Sender: FDA-Public Use
  Company Number: 2005068728

PATIENT
  Age: 64 Year
  Sex: Male
  Weight: 104.3273 kg

DRUGS (17)
  1. CELEBREX [Suspect]
     Indication: ARTHRITIS
  2. BEXTRA [Suspect]
     Indication: ARTHRITIS
     Dosage: 20 MG (20 MG, 1 IN 1 D)
  3. ASASANTIN (ACETYLSALICYLIC ACID, DIPYRIDAMOLE) [Concomitant]
  4. FOSINOPRIL SODIUM [Concomitant]
  5. LITHIUM [Suspect]
     Indication: BIPOLAR DISORDER
     Dates: end: 20030701
  6. OLANZAPINE [Suspect]
     Indication: ILL-DEFINED DISORDER
  7. VALPROATE SODIUM [Concomitant]
  8. LEVOTHYROXINE SODIUM [Concomitant]
  9. POTASSIUM CHLORIDE [Concomitant]
  10. QUETIAPINE FUMARATE [Concomitant]
  11. ATENOLOL [Concomitant]
  12. METFORMIN HCL [Concomitant]
  13. MINOXIDIL [Concomitant]
  14. FOSINOPRIL SODIUM [Concomitant]
  15. FUROSEMIDE [Concomitant]
  16. SIMVASTATIN [Concomitant]
  17. ROSIGLITAZONE MALEATE [Concomitant]

REACTIONS (11)
  - ABDOMINAL DISTENSION [None]
  - AGGRESSION [None]
  - ANTIDEPRESSANT DRUG LEVEL INCREASED [None]
  - DEMENTIA [None]
  - DIFFICULTY IN WALKING [None]
  - DRUG EFFECT DECREASED [None]
  - DYSKINESIA [None]
  - ERYTHEMA [None]
  - HELICOBACTER INFECTION [None]
  - MYOCARDIAL INFARCTION [None]
  - PRURITUS GENERALISED [None]
